FAERS Safety Report 12427783 (Version 1)
Quarter: 2016Q2

REPORT INFORMATION
  Report Type: Spontaneous
  Country: AU (occurrence: AU)
  Receive Date: 20160602
  Receipt Date: 20160602
  Transmission Date: 20160815
  Serious: Yes (Hospitalization, Other)
  Sender: FDA-Public Use
  Company Number: AU-BRISTOL-MYERS SQUIBB COMPANY-BMS-2016-041455

PATIENT
  Age: 59 Year
  Sex: Female

DRUGS (1)
  1. OPDIVO [Suspect]
     Active Substance: NIVOLUMAB
     Indication: NON-SMALL CELL LUNG CANCER
     Dosage: 260 MG, UNK
     Route: 042
     Dates: start: 20160330

REACTIONS (2)
  - Dysarthria [Unknown]
  - Reversible cerebral vasoconstriction syndrome [Unknown]

NARRATIVE: CASE EVENT DATE: 20160517
